FAERS Safety Report 5128043-3 (Version None)
Quarter: 2006Q4

REPORT INFORMATION
  Report Type: 
  Country: None (occurrence: None)
  Receive Date: 20061010
  Receipt Date: 20060927
  Transmission Date: 20070319
  Serious: Yes (Other)
  Sender: FDA-Public Use
  Company Number: 2006117118

PATIENT
  Sex: Male

DRUGS (1)
  1. CADUET [Suspect]
     Dosage: ORAL
     Route: 048

REACTIONS (1)
  - HYPERTENSIVE CRISIS [None]
